FAERS Safety Report 9651821 (Version 2)
Quarter: 2014Q1

REPORT INFORMATION
  Report Type: Spontaneous
  Country: US (occurrence: US)
  Receive Date: 20131029
  Receipt Date: 20140127
  Transmission Date: 20141002
  Serious: Yes (Other)
  Sender: FDA-Public Use
  Company Number: US-B.I. PHARMACEUTICALS,INC./RIDGEFIELD-2013-BI-33715BP

PATIENT
  Sex: Female
  Weight: 72.57 kg

DRUGS (2)
  1. MOBIC [Suspect]
     Indication: DIABETIC NEUROPATHY
  2. LISINOPRIL [Concomitant]
     Indication: HYPERTENSION

REACTIONS (6)
  - Gait disturbance [Unknown]
  - Hypoaesthesia [Unknown]
  - Paraesthesia [Unknown]
  - Burning feet syndrome [Unknown]
  - Drug ineffective [Unknown]
  - Off label use [Unknown]
